FAERS Safety Report 9562578 (Version 1)
Quarter: 2013Q3

REPORT INFORMATION
  Report Type: Spontaneous
  Country: US (occurrence: None)
  Receive Date: 20130926
  Receipt Date: 20130926
  Transmission Date: 20140515
  Serious: Yes (Other)
  Sender: FDA-Public Use
  Company Number: None

PATIENT
  Age: 32 Year
  Sex: Female

DRUGS (1)
  1. ENBREL [Suspect]
     Indication: PSORIASIS
     Route: 058
     Dates: start: 201309

REACTIONS (8)
  - Palpitations [None]
  - Fatigue [None]
  - Muscle spasms [None]
  - Somnolence [None]
  - Decreased appetite [None]
  - Chills [None]
  - Ocular hyperaemia [None]
  - Blepharospasm [None]
